FAERS Safety Report 6433358-2 (Version None)
Quarter: 2009Q4

REPORT INFORMATION
  Report Type: 
  Country: None (occurrence: None)
  Receive Date: 20091109
  Receipt Date: 20091030
  Transmission Date: 20100525
  Serious: Yes (Hospitalization)
  Sender: FDA-Public Use
  Company Number: US-AMGEN-QUU369835

PATIENT
  Sex: Female

DRUGS (4)
  1. ENBREL [Suspect]
     Indication: PSORIATIC ARTHROPATHY
     Route: 058
     Dates: start: 20090708
  2. ENBREL [Suspect]
     Indication: PSORIASIS
  3. DOVONEX [Concomitant]
  4. LIDEX [Concomitant]

REACTIONS (10)
  - ARTHRALGIA [None]
  - CORONARY ARTERY DISEASE [None]
  - DRUG INEFFECTIVE [None]
  - DRY SKIN [None]
  - GASTROOESOPHAGEAL REFLUX DISEASE [None]
  - PAIN IN EXTREMITY [None]
  - SKIN EXFOLIATION [None]
  - SPLINTER [None]
  - TOOTH DISORDER [None]
  - TOOTH INFECTION [None]
